FAERS Safety Report 8263848-1 (Version None)
Quarter: 2012Q2

REPORT INFORMATION
  Report Type: 
  Country: None (occurrence: None)
  Receive Date: 20120405
  Receipt Date: 20120329
  Transmission Date: 20120825
  Serious: Yes (Hospitalization, Disabling)
  Sender: FDA-Public Use
  Company Number: US-MERCK-1107USA01368

PATIENT
  Age: 50 Year
  Sex: Female
  Weight: 64 kg

DRUGS (11)
  1. ALENDRONATE SODIUM [Suspect]
     Indication: OSTEOPOROSIS
     Route: 048
     Dates: start: 20080301, end: 20080501
  2. FOSAMAX [Suspect]
     Route: 048
     Dates: start: 20010101, end: 20080201
  3. FOSAMAX [Suspect]
     Route: 048
     Dates: start: 20080601, end: 20090701
  4. FOSAMAX [Suspect]
     Indication: OSTEOPENIA
     Route: 048
     Dates: start: 20000301, end: 20001101
  5. FOSAMAX [Suspect]
     Route: 048
     Dates: start: 20080601, end: 20090701
  6. ALENDRONATE SODIUM [Suspect]
     Indication: OSTEOPENIA
     Route: 048
     Dates: start: 20080301, end: 20080501
  7. FOSAMAX [Suspect]
     Indication: OSTEOPOROSIS
     Route: 048
     Dates: start: 20000301, end: 20001101
  8. PROTONIX [Concomitant]
     Route: 065
     Dates: start: 20050101
  9. FOSAMAX [Suspect]
     Route: 048
     Dates: start: 20010101, end: 20080201
  10. VITAMIN D (UNSPECIFIED) [Concomitant]
     Route: 065
     Dates: start: 20050101
  11. CALCIUM (UNSPECIFIED) [Concomitant]
     Route: 065
     Dates: start: 20050101

REACTIONS (28)
  - DEVICE FAILURE [None]
  - OSTEOARTHRITIS [None]
  - WRIST FRACTURE [None]
  - URINARY RETENTION [None]
  - FRACTURE NONUNION [None]
  - HIATUS HERNIA [None]
  - ANAL FISSURE [None]
  - GASTRITIS [None]
  - FOOT FRACTURE [None]
  - EXOSTOSIS [None]
  - LOW TURNOVER OSTEOPATHY [None]
  - ANAL PRURITUS [None]
  - ANXIETY [None]
  - CONSTIPATION [None]
  - FEMUR FRACTURE [None]
  - EXCORIATION [None]
  - RECTAL HAEMORRHAGE [None]
  - HAEMORRHOIDS [None]
  - TOOTH DISORDER [None]
  - ASTHMA [None]
  - RECTAL POLYP [None]
  - SPONDYLITIS [None]
  - DIVERTICULUM [None]
  - FALL [None]
  - FAECALOMA [None]
  - PROCTALGIA [None]
  - HYPERLIPIDAEMIA [None]
  - HAND FRACTURE [None]
